FAERS Safety Report 4608062-3 (Version None)
Quarter: 2005Q1

REPORT INFORMATION
  Report Type: 
  Country: None (occurrence: None)
  Receive Date: 20050314
  Receipt Date: 20050113
  Transmission Date: 20050727
  Serious: Yes (Hospitalization, Disabling)
  Sender: FDA-Public Use
  Company Number: AU-MERCK-0501AUS00152

PATIENT
  Age: 72 Year
  Sex: Female

DRUGS (8)
  1. ZETIA [Suspect]
     Indication: BLOOD CHOLESTEROL INCREASED
     Route: 048
     Dates: start: 20041219
  2. PREDNISOLONE [Concomitant]
     Route: 065
     Dates: start: 20050101
  3. LABETALOL HYDROCHLORIDE [Concomitant]
     Indication: HYPERTENSION
     Route: 048
  4. CLONIDINE [Concomitant]
     Route: 065
  5. CLONIDINE [Concomitant]
     Route: 065
  6. VERAPAMIL [Concomitant]
     Route: 065
  7. MYCOPHENOLATE SODIUM [Concomitant]
     Route: 065
  8. DARBEPOETIN ALFA [Concomitant]
     Indication: ANAEMIA
     Route: 065

REACTIONS (1)
  - DEEP VEIN THROMBOSIS [None]
